FAERS Safety Report 22293356 (Version 1)
Quarter: 2023Q2

REPORT INFORMATION
  Report Type: Spontaneous
  Country: US (occurrence: US)
  Receive Date: 20230508
  Receipt Date: 20230508
  Transmission Date: 20230722
  Serious: No
  Sender: FDA-Public Use
  Company Number: US-BAYER-2023A059920

PATIENT
  Age: 65 Year
  Sex: Female
  Weight: 65.76 kg

DRUGS (4)
  1. ALEVE [Suspect]
     Active Substance: NAPROXEN SODIUM
  2. TYVASO [Concomitant]
     Active Substance: TREPROSTINIL
  3. BOSENTAN [Concomitant]
     Active Substance: BOSENTAN
  4. TADALAFIL [Concomitant]
     Active Substance: TADALAFIL

REACTIONS (1)
  - Abdominal pain upper [Unknown]
